FAERS Safety Report 8176420-9 (Version None)
Quarter: 2012Q1

REPORT INFORMATION
  Report Type: 
  Country: None (occurrence: None)
  Receive Date: 20120301
  Receipt Date: 20120223
  Transmission Date: 20120608
  Serious: Yes (Other)
  Sender: FDA-Public Use
  Company Number: US-AMGEN-USACT2012012238

PATIENT
  Sex: Male

DRUGS (5)
  1. OXYCODONE HCL [Concomitant]
  2. DEXAMETHASONE [Concomitant]
     Dosage: UNK UNK, QD
     Route: 048
     Dates: start: 20100611, end: 20110825
  3. XGEVA [Suspect]
     Indication: METASTASES TO BONE
     Dosage: UNK
     Dates: end: 20110602
  4. CALCIUM [Concomitant]
  5. VITAMIN D [Concomitant]

REACTIONS (1)
  - PAIN IN JAW [None]
